FAERS Safety Report 6406990-X (Version None)
Quarter: 2009Q4

REPORT INFORMATION
  Report Type: 
  Country: None (occurrence: None)
  Receive Date: 20091020
  Receipt Date: 20091006
  Transmission Date: 20100525
  Serious: Yes (Hospitalization, Other)
  Sender: FDA-Public Use
  Company Number: PHHY2009MX40634

PATIENT
  Age: 68 Year
  Sex: Female

DRUGS (2)
  1. DIOVAN HCT [Suspect]
     Indication: HYPERTENSION
     Dosage: 2 TABLETS (80/12.5MG) PER DAY
     Route: 048
     Dates: start: 20050701
  2. DIOVAN HCT [Suspect]
     Dosage: 1 DF (80/12.5 MG) PER DAY
     Route: 048
     Dates: start: 20090301

REACTIONS (5)
  - FALL [None]
  - KNEE ARTHROPLASTY [None]
  - LIGAMENT OPERATION [None]
  - SURGERY [None]
  - TENDON OPERATION [None]
